FAERS Safety Report 8129275-2 (Version None)
Quarter: 2012Q1

REPORT INFORMATION
  Report Type: 
  Country: None (occurrence: None)
  Receive Date: 20120210
  Receipt Date: 20111128
  Transmission Date: 20120608
  Serious: No
  Sender: FDA-Public Use
  Company Number: US-BRISTOL-MYERS SQUIBB COMPANY-16252546

PATIENT
  Age: 50 Year
  Sex: Female
  Weight: 52 kg

DRUGS (2)
  1. ORENCIA [Suspect]
     Route: 058
  2. PREDNISONE [Concomitant]

REACTIONS (3)
  - ERYTHEMA [None]
  - PAIN [None]
  - INJECTION SITE REACTION [None]
